FAERS Safety Report 6033036-8 (Version None)
Quarter: 2009Q1

REPORT INFORMATION
  Report Type: 
  Country: None (occurrence: None)
  Receive Date: 20090109
  Receipt Date: 20081230
  Transmission Date: 20090719
  Serious: Yes (Hospitalization)
  Sender: FDA-Public Use
  Company Number: DE-WYE-H07386808

PATIENT
  Sex: Female

DRUGS (17)
  1. PANTOPRAZOLE SODIUM [Suspect]
     Indication: HELICOBACTER GASTRITIS
     Route: 048
     Dates: start: 20051206, end: 20051226
  2. PANTOPRAZOLE SODIUM [Suspect]
     Indication: PROPHYLAXIS AGAINST GASTROINTESTINAL ULCER
     Route: 048
     Dates: start: 20051129, end: 20051202
  3. CLARITHROMYCIN [Suspect]
     Indication: HELICOBACTER GASTRITIS
     Route: 048
     Dates: start: 20051129, end: 20051202
  4. CLEMASTINE FUMARATE [Suspect]
     Indication: PRURITUS
     Dosage: 1 DF IN THE MORNING AND 2 DF IN THE EVENING
     Route: 048
     Dates: start: 20051206, end: 20051212
  5. INSIDON [Suspect]
     Indication: SLEEP DISORDER
     Route: 048
     Dates: start: 20051118, end: 20051205
  6. INSIDON [Suspect]
     Dosage: UNKNOWN
     Route: 048
     Dates: start: 20051212
  7. OXAZEPAM [Suspect]
     Indication: SLEEP DISORDER
     Route: 048
     Dates: start: 20051207, end: 20051207
  8. DERMOXIN [Suspect]
     Route: 061
     Dates: start: 20051206, end: 20051211
  9. DERMOXIN [Suspect]
     Route: 061
     Dates: start: 20051212
  10. VALETTE [Suspect]
     Indication: ORAL CONTRACEPTION
     Route: 048
     Dates: start: 20030101
  11. NITRAZEPAM [Suspect]
     Indication: SLEEP DISORDER
     Route: 048
     Dates: start: 20051202, end: 20051205
  12. NITRAZEPAM [Suspect]
     Route: 048
     Dates: start: 20051212, end: 20051227
  13. URBASON [Suspect]
     Indication: SKIN DISORDER
     Dosage: UNKNOWN
     Route: 048
     Dates: start: 20051206
  14. ATARAX [Suspect]
     Indication: PRURITUS
     Dosage: UNSPECIFIED
     Route: 048
     Dates: start: 20051206
  15. TEMAZEPAM [Suspect]
     Indication: SLEEP DISORDER
     Route: 048
     Dates: start: 20051208, end: 20051211
  16. AMOXICILLIN [Suspect]
     Indication: HELICOBACTER GASTRITIS
     Route: 048
     Dates: start: 20051129, end: 20051202
  17. CETIRIZINE HCL [Suspect]
     Indication: PRURITUS
     Route: 048
     Dates: start: 20051212

REACTIONS (5)
  - DRUG ERUPTION [None]
  - PRURITUS [None]
  - RASH [None]
  - SKIN DISORDER [None]
  - STEVENS-JOHNSON SYNDROME [None]
